FAERS Safety Report 5007409-6 (Version None)
Quarter: 2006Q2

REPORT INFORMATION
  Report Type: 
  Country: None (occurrence: None)
  Receive Date: 20060517
  Receipt Date: 20060508
  Transmission Date: 20061013
  Serious: Yes (Death)
  Sender: FDA-Public Use
  Company Number: 163-20785-06040161

PATIENT
  Age: 83 Year
  Sex: Male

DRUGS (9)
  1. THALOMID [Suspect]
     Indication: PROSTATE CANCER
     Dosage: 200  MG, QD, ORAL
     Route: 048
     Dates: start: 20060314, end: 20060327
  2. COUMADIN [Concomitant]
  3. PREDNISONE [Concomitant]
  4. CASODEX [Concomitant]
  5. DES (DIETHYLSTILBESTROL) [Concomitant]
  6. LASIX [Concomitant]
  7. NIACIN [Concomitant]
  8. ZYRTEC [Concomitant]
  9. TERAZOSIN HCL [Concomitant]

REACTIONS (2)
  - CARDIAC FAILURE CONGESTIVE [None]
  - PNEUMONIA ASPIRATION [None]
